FAERS Safety Report 21561674 (Version 2)
Quarter: 2022Q4

REPORT INFORMATION
  Report Type: Spontaneous
  Country: US (occurrence: US)
  Receive Date: 20221107
  Receipt Date: 20221118
  Transmission Date: 20230112
  Serious: No
  Sender: FDA-Public Use
  Company Number: US-Calliditas-2022CAL00439

PATIENT
  Age: 42 Year
  Sex: Male

DRUGS (5)
  1. TARPEYO [Suspect]
     Active Substance: BUDESONIDE
     Indication: IgA nephropathy
     Dosage: 16 MG (4MG CAPSULES) ONCE DAILY
     Route: 048
     Dates: start: 202210
  2. LISINOPRIL [Concomitant]
     Active Substance: LISINOPRIL
  3. ALLOPURINOL [Concomitant]
     Active Substance: ALLOPURINOL
  4. FARXIGA [Concomitant]
     Active Substance: DAPAGLIFLOZIN PROPANEDIOL
  5. HYDROCHLOROTHIAZIDE [Concomitant]
     Active Substance: HYDROCHLOROTHIAZIDE

REACTIONS (2)
  - Somnolence [Recovered/Resolved]
  - Dizziness [Recovered/Resolved]

NARRATIVE: CASE EVENT DATE: 20221001
